FAERS Safety Report 15186547 (Version 1)
Quarter: 2018Q3

REPORT INFORMATION
  Report Type: Report from Study
  Country: US (occurrence: US)
  Receive Date: 20180723
  Receipt Date: 20180723
  Transmission Date: 20181010
  Serious: No
  Sender: FDA-Public Use
  Company Number: US-EXELIXIS-CABO-18012357

PATIENT
  Sex: Male

DRUGS (2)
  1. CABOMETYX [Suspect]
     Active Substance: CABOZANTINIB S-MALATE
     Dosage: 60 MG, UNK
     Dates: start: 20180209
  2. CABOMETYX [Suspect]
     Active Substance: CABOZANTINIB S-MALATE
     Indication: RENAL CELL CARCINOMA
     Dosage: UNK

REACTIONS (8)
  - Decreased appetite [Unknown]
  - Chapped lips [Unknown]
  - Weight decreased [Unknown]
  - Contusion [Unknown]
  - Platelet count decreased [Unknown]
  - Dry mouth [Unknown]
  - Fatigue [Unknown]
  - Abdominal discomfort [Unknown]
